FAERS Safety Report 14045923 (Version 3)
Quarter: 2018Q1

REPORT INFORMATION
  Report Type: Spontaneous
  Country: US (occurrence: US)
  Receive Date: 20171005
  Receipt Date: 20180105
  Transmission Date: 20180508
  Serious: No
  Sender: FDA-Public Use
  Company Number: US-PFIZER INC-2017428120

PATIENT
  Age: 38 Year
  Sex: Female
  Weight: 104.33 kg

DRUGS (4)
  1. DESVENLAFAXINE SUCCINATE MONOHYDRATE [Suspect]
     Active Substance: DESVENLAFAXINE SUCCINATE
     Indication: DEPRESSION
     Dosage: 100 MG, 1X/DAY
     Route: 048
     Dates: start: 20170829, end: 20170928
  2. DESVENLAFAXINE SUCCINATE MONOHYDRATE [Suspect]
     Active Substance: DESVENLAFAXINE SUCCINATE
     Indication: ANXIETY
     Dosage: 100 MG, 1X/DAY
     Dates: end: 20171201
  3. ULTRAM [Concomitant]
     Active Substance: TRAMADOL HYDROCHLORIDE
  4. ORTHO TRI CYCLEN [Concomitant]
     Active Substance: ETHINYL ESTRADIOL\NORGESTIMATE
     Indication: CONTRACEPTION
     Dosage: ONE TABLET, DAILY
     Route: 048
     Dates: start: 1994

REACTIONS (9)
  - Nipple pain [Recovered/Resolved]
  - Irritability [Recovered/Resolved]
  - Dry mouth [Recovered/Resolved]
  - Mood altered [Recovered/Resolved]
  - Dysgeusia [Recovered/Resolved]
  - Condition aggravated [Recovered/Resolved]
  - Impatience [Recovered/Resolved]
  - Depression [Recovered/Resolved]
  - Insomnia [Recovered/Resolved]

NARRATIVE: CASE EVENT DATE: 20170829
